FAERS Safety Report 5474781-2 (Version None)
Quarter: 2007Q4

REPORT INFORMATION
  Report Type: 
  Country: None (occurrence: None)
  Receive Date: 20071002
  Receipt Date: 20070927
  Transmission Date: 20080405
  Serious: Yes (Hospitalization)
  Sender: FDA-Public Use
  Company Number: B0485806A

PATIENT
  Age: 69 Year
  Sex: Male
  Weight: 43.1 kg

DRUGS (2)
  1. VALTREX [Suspect]
     Indication: HERPES ZOSTER
     Dosage: 1000MG TWICE PER DAY
     Route: 048
     Dates: start: 20070902, end: 20070903
  2. LOXONIN [Concomitant]

REACTIONS (2)
  - NERVOUS SYSTEM DISORDER [None]
  - VOMITING [None]
